FAERS Safety Report 7050103-0 (Version None)
Quarter: 2010Q4

REPORT INFORMATION
  Report Type: 
  Country: None (occurrence: None)
  Receive Date: 20101018
  Receipt Date: 20101015
  Transmission Date: 20110411
  Serious: Yes (Other)
  Sender: FDA-Public Use
  Company Number: CH-BRISTOL-MYERS SQUIBB COMPANY-15325467

PATIENT
  Age: 36 Year

DRUGS (4)
  1. REYATAZ [Suspect]
     Indication: HIV INFECTION
     Route: 048
     Dates: start: 20100920
  2. EFAVIRENZ [Suspect]
     Dates: start: 20100831, end: 20100920
  3. RITONAVIR [Suspect]
     Indication: HIV INFECTION
     Dates: start: 20100920
  4. TENOFOVIR DF + EMTRICITABINE [Suspect]
     Dosage: FIXED DOSE COMBINATION AUG31 TO 20SEP10 ALONG WITH EFAVIRENZ
     Dates: start: 20100920

REACTIONS (2)
  - DIZZINESS [None]
  - HEPATITIS [None]
